FAERS Safety Report 5867914-7 (Version None)
Quarter: 2008Q3

REPORT INFORMATION
  Report Type: 
  Country: None (occurrence: None)
  Receive Date: 20080902
  Receipt Date: 20080822
  Transmission Date: 20090109
  Serious: No
  Sender: FDA-Public Use
  Company Number: US-BOEHRINGER INGELHEIM GMBH, GERMANY-2008-BP-13491BP

PATIENT
  Age: 82 Year
  Sex: Male

DRUGS (4)
  1. FLOMAX [Suspect]
     Indication: PROSTATOMEGALY
     Route: 048
     Dates: start: 20080801
  2. VERAPAMIL [Concomitant]
     Indication: HYPERTENSION
     Route: 048
  3. SIMVASTATIN [Concomitant]
     Indication: BLOOD CHOLESTEROL
     Route: 048
  4. FINASTERIDE [Concomitant]
     Indication: PROSTATOMEGALY
     Route: 048

REACTIONS (3)
  - NOCTURIA [None]
  - SOMNOLENCE [None]
  - VISION BLURRED [None]
